FAERS Safety Report 5149485-6 (Version None)
Quarter: 2006Q4

REPORT INFORMATION
  Report Type: 
  Country: None (occurrence: None)
  Receive Date: 20061113
  Receipt Date: 20060929
  Transmission Date: 20070319
  Serious: Yes (Hospitalization)
  Sender: FDA-Public Use
  Company Number: PHHO2006TW16380

PATIENT
  Age: 50 Year
  Sex: Male
  Weight: 67 kg

DRUGS (3)
  1. NEORAL [Suspect]
     Indication: HEART TRANSPLANT
     Dosage: 100 MG, BID
  2. NEORAL [Suspect]
     Dosage: 75 MG, BID
  3. RAD001A [Suspect]
     Indication: HEART TRANSPLANT
     Dosage: 0.75 MG, BID
     Route: 048
     Dates: start: 20060620

REACTIONS (4)
  - BLOOD CREATININE INCREASED [None]
  - BLOOD UREA INCREASED [None]
  - FOCAL GLOMERULOSCLEROSIS [None]
  - RENAL IMPAIRMENT [None]
